FAERS Safety Report 6611270-3 (Version None)
Quarter: 2010Q1

REPORT INFORMATION
  Report Type: 
  Country: None (occurrence: None)
  Receive Date: 20100301
  Receipt Date: 20100301
  Transmission Date: 20100710
  Serious: Yes (Other)
  Sender: FDA-Public Use
  Company Number: None

PATIENT
  Sex: Female
  Weight: 97.5234 kg

DRUGS (6)
  1. COPAXONE [Suspect]
     Indication: MULTIPLE SCLEROSIS
     Dosage: 20 MG DAILY SQ
     Route: 058
     Dates: start: 20091001, end: 20100226
  2. SPIRONOLACTONE [Concomitant]
  3. PRAVASTATIN [Concomitant]
  4. GABAPENTIN [Concomitant]
  5. CLONAZEPAM [Concomitant]
  6. MUSCLE RELAXANT [Concomitant]

REACTIONS (10)
  - DYSPHAGIA [None]
  - HYPOAESTHESIA [None]
  - HYPOAESTHESIA ORAL [None]
  - INJECTION SITE INDURATION [None]
  - INJECTION SITE PRURITUS [None]
  - ODYNOPHAGIA [None]
  - OROPHARYNGEAL PAIN [None]
  - PARAESTHESIA ORAL [None]
  - URINARY RETENTION [None]
  - WEIGHT INCREASED [None]
